FAERS Safety Report 23597706 (Version 2)
Quarter: 2024Q2

REPORT INFORMATION
  Report Type: Report from Study
  Country: US (occurrence: US)
  Receive Date: 20240305
  Receipt Date: 20240408
  Transmission Date: 20240716
  Serious: Yes (Other)
  Sender: FDA-Public Use
  Company Number: US-ABBVIE-5664367

PATIENT
  Sex: Male

DRUGS (3)
  1. IMBRUVICA [Suspect]
     Active Substance: IBRUTINIB
     Indication: Waldenstrom^s macroglobulinaemia
     Dosage: FORM STRENGTH 140 MG CAPSULES, 420MG DAILY
     Route: 048
     Dates: start: 20201006, end: 20221109
  2. IMBRUVICA [Suspect]
     Active Substance: IBRUTINIB
     Indication: Waldenstrom^s macroglobulinaemia
     Dosage: FORM STRENGTH 140 MG CAPSULES, 280 MG DAILY, MISSED COUPLE OF DOSES IN 2024
     Route: 048
     Dates: start: 20221109
  3. IMBRUVICA [Suspect]
     Active Substance: IBRUTINIB
     Indication: Waldenstrom^s macroglobulinaemia
     Dosage: FORM STRENGTH 140 MG CAPSULES, 280 MG DAILY
     Route: 048
     Dates: start: 2024

REACTIONS (1)
  - Carpal tunnel syndrome [Unknown]
